FAERS Safety Report 20982897 (Version 1)
Quarter: 2022Q2

REPORT INFORMATION
  Report Type: Spontaneous
  Country: US (occurrence: US)
  Receive Date: 20220620
  Receipt Date: 20220620
  Transmission Date: 20220721
  Serious: Yes (Hospitalization)
  Sender: FDA-Public Use
  Company Number: US-GW PHARMA-2022-US-020432

PATIENT
  Age: 5 Year
  Sex: Male
  Weight: 23.129 kg

DRUGS (4)
  1. EPIDIOLEX [Suspect]
     Active Substance: CANNABIDIOL
     Indication: Epilepsy
     Dosage: 300 MILLIGRAM, BID (PER J TUBE)
     Dates: start: 20210729
  2. EPIDIOLEX [Suspect]
     Active Substance: CANNABIDIOL
     Indication: Cerebral palsy
  3. DYSPORT [BOTULINUM TOXIN TYPE A] [Concomitant]
     Indication: Epilepsy
     Dosage: 500 UNITS EVERY 3 MONTHS
     Dates: start: 20211102
  4. DYSPORT [BOTULINUM TOXIN TYPE A] [Concomitant]
     Indication: Cerebral palsy

REACTIONS (2)
  - Surgery [Unknown]
  - Off label use [Unknown]

NARRATIVE: CASE EVENT DATE: 20210729
